FAERS Safety Report 15198328 (Version 1)
Quarter: 2018Q3

REPORT INFORMATION
  Report Type: Spontaneous
  Country: FR (occurrence: FR)
  Receive Date: 20180725
  Receipt Date: 20180725
  Transmission Date: 20181010
  Serious: Yes (Hospitalization)
  Sender: FDA-Public Use
  Company Number: PHHY2018FR055026

PATIENT
  Age: 20 Year
  Sex: Male
  Weight: 60 kg

DRUGS (4)
  1. PARACETAMOL [Suspect]
     Active Substance: ACETAMINOPHEN
     Indication: POISONING DELIBERATE
     Dosage: 55 G, TOTAL
     Route: 048
     Dates: start: 20180508, end: 20180508
  2. SPASFON (PHLOROGLUCINOL\TRIMETHYLPHLOROGLUCINOL) [Suspect]
     Active Substance: PHLOROGLUCINOL\1,3,5-TRIMETHOXYBENZENE
     Indication: POISONING DELIBERATE
     Dosage: 100 MG, TOTAL
     Route: 048
     Dates: start: 20180508, end: 20180508
  3. VOGALENE [Suspect]
     Active Substance: METOPIMAZINE
     Indication: POISONING DELIBERATE
     Dosage: 60 MG, TOTAL
     Route: 048
     Dates: start: 20180508, end: 20180508
  4. AMOXICILLIN. [Suspect]
     Active Substance: AMOXICILLIN
     Indication: POISONING DELIBERATE
     Dosage: 6 G, TOTAL
     Route: 048
     Dates: start: 20180508, end: 20180508

REACTIONS (1)
  - Analgesic drug level increased [Recovered/Resolved]

NARRATIVE: CASE EVENT DATE: 20180508
